FAERS Safety Report 15489530 (Version 1)
Quarter: 2018Q4

REPORT INFORMATION
  Report Type: Spontaneous
  Country: US (occurrence: US)
  Receive Date: 20181011
  Receipt Date: 20181011
  Transmission Date: 20190205
  Serious: No
  Sender: FDA-Public Use
  Company Number: US-PERRIGO-18US003576

PATIENT
  Age: 63 Year
  Sex: Male
  Weight: 113.38 kg

DRUGS (11)
  1. NICOTINE POLACRILEX [Suspect]
     Active Substance: NICOTINE
     Indication: WEIGHT CONTROL
  2. NICOTINE POLACRILEX [Suspect]
     Active Substance: NICOTINE
     Indication: EUPHORIC MOOD
     Dosage: 4 MG, APPROXIMATELY 5 TO 10 TIMES DAILY
     Route: 002
     Dates: start: 201709, end: 20180326
  3. METFORMIN [Concomitant]
     Active Substance: METFORMIN HYDROCHLORIDE
     Indication: ADVERSE DRUG REACTION
     Dosage: UNK
     Route: 048
     Dates: start: 2017
  4. LOSARTAN. [Concomitant]
     Active Substance: LOSARTAN
     Indication: HYPERTENSION
     Dosage: UNK
     Route: 048
     Dates: start: 2017
  5. GLIPIZIDE. [Concomitant]
     Active Substance: GLIPIZIDE
     Indication: DIABETES MELLITUS
     Dosage: UNK
     Route: 048
     Dates: start: 201707
  6. ASPIRIN                            /00002701/ [Concomitant]
     Active Substance: ASPIRIN
     Indication: ANTICOAGULANT THERAPY
     Dosage: UNK
     Route: 048
     Dates: start: 2017
  7. NICOTINE POLACRILEX [Suspect]
     Active Substance: NICOTINE
     Indication: EUPHORIC MOOD
     Dosage: 4 MG, APPROXIMATELY 5 TO 10 TIMES DAILY
     Route: 002
     Dates: start: 201709, end: 20180326
  8. AMLODIPINE [Concomitant]
     Active Substance: AMLODIPINE BESYLATE
     Indication: HYPERTENSION
     Dosage: UNK
     Route: 048
     Dates: start: 2017
  9. PRAVASTATIN. [Concomitant]
     Active Substance: PRAVASTATIN
     Indication: BLOOD CHOLESTEROL INCREASED
     Dosage: UNK
     Route: 048
     Dates: start: 2017
  10. NICOTINE POLACRILEX [Suspect]
     Active Substance: NICOTINE
     Indication: WEIGHT CONTROL
  11. PROBIOTICS NOS [Suspect]
     Active Substance: PROBIOTICS NOS
     Indication: ROUTINE HEALTH MAINTENANCE
     Dosage: 5 ML, QD
     Route: 048
     Dates: start: 201710, end: 201711

REACTIONS (9)
  - Rash [Not Recovered/Not Resolved]
  - Malaise [Recovered/Resolved]
  - Therapeutic response unexpected [Unknown]
  - Scab [Not Recovered/Not Resolved]
  - Hypersensitivity [Recovering/Resolving]
  - Nausea [Recovered/Resolved]
  - Fatigue [Recovered/Resolved]
  - Headache [Recovered/Resolved]
  - Off label use [Recovered/Resolved]

NARRATIVE: CASE EVENT DATE: 2017
